FAERS Safety Report 13143569 (Version 1)
Quarter: 2017Q1

REPORT INFORMATION
  Report Type: Spontaneous
  Country: US (occurrence: US)
  Receive Date: 20170124
  Receipt Date: 20170124
  Transmission Date: 20170428
  Serious: No
  Sender: FDA-Public Use
  Company Number: US-GLAXOSMITHKLINE-US2017008158

PATIENT
  Age: 70 Year
  Sex: Male

DRUGS (1)
  1. NICORETTE [Suspect]
     Active Substance: NICOTINE
     Indication: SMOKING CESSATION THERAPY
     Dosage: UNK

REACTIONS (4)
  - Nicotine dependence [Recovered/Resolved]
  - Tobacco poisoning [Recovered/Resolved]
  - Tooth loss [Recovered/Resolved]
  - Oral discomfort [Recovered/Resolved]
